FAERS Safety Report 24686188 (Version 1)
Quarter: 2024Q4

REPORT INFORMATION
  Report Type: Spontaneous
  Country: US (occurrence: US)
  Receive Date: 20241202
  Receipt Date: 20241202
  Transmission Date: 20250115
  Serious: No
  Sender: FRESENIUS KABI
  Company Number: US-FreseniusKabi-FK202417740

PATIENT
  Age: 44 Year
  Sex: Male
  Weight: 111 kg

DRUGS (6)
  1. HEPARIN SODIUM [Suspect]
     Active Substance: HEPARIN SODIUM
     Indication: Anticoagulant therapy
     Dosage: FOA-INJECTION?IV INITIAL DOSE/SUBSEQUENT DOSES HEART LUNGS MACHINE?35 MG/KG INITIAL/SUBSEQUENT DOSES
     Route: 040
     Dates: start: 20241122, end: 20241122
  2. HEPARIN SODIUM [Suspect]
     Active Substance: HEPARIN SODIUM
     Indication: Cardiopulmonary bypass
  3. ASPIRIN [Concomitant]
     Active Substance: ASPIRIN
  4. UNSPECIFIED INGREDIENT [Concomitant]
     Active Substance: UNSPECIFIED INGREDIENT
  5. GLUCAGON [Concomitant]
     Active Substance: GLUCAGON
  6. ZETIA [Concomitant]
     Active Substance: EZETIMIBE

REACTIONS (1)
  - Therapeutic product effect decreased [Recovered/Resolved]

NARRATIVE: CASE EVENT DATE: 20241122
